FAERS Safety Report 9803557 (Version 1)
Quarter: 2014Q1

REPORT INFORMATION
  Report Type: Spontaneous
  Country: US (occurrence: US)
  Receive Date: 20140108
  Receipt Date: 20140108
  Transmission Date: 20141002
  Serious: No
  Sender: FDA-Public Use
  Company Number: US-GLAXOSMITHKLINE-A1006983A

PATIENT
  Age: 64 Year
  Sex: Female
  Weight: 81.4 kg

DRUGS (10)
  1. LOVAZA [Suspect]
     Indication: HYPERTRIGLYCERIDAEMIA
     Dosage: 2G TWICE PER DAY
     Route: 048
     Dates: start: 20121220
  2. NORVASC [Concomitant]
     Indication: HYPERTENSION
     Dosage: 5MG PER DAY
     Route: 048
  3. UNSPECIFIED MEDICATION [Concomitant]
  4. LOSARTAN WITH HYDROCHLOROTHIAZIDE [Concomitant]
     Indication: HYPERTENSION
     Route: 048
  5. SYNTHROID [Concomitant]
     Indication: HYPOTHYROIDISM
     Dosage: 50MCG PER DAY
     Route: 048
  6. LUVOX [Concomitant]
     Indication: OBSESSIVE-COMPULSIVE DISORDER
     Dosage: 100MG TWICE PER DAY
     Route: 048
  7. BENTYL [Concomitant]
     Indication: IRRITABLE BOWEL SYNDROME
     Dosage: 20MG TWICE PER DAY
     Route: 048
  8. TEGRETOL [Concomitant]
     Indication: TRIGEMINAL NEURALGIA
     Dosage: 200MG TWICE PER DAY
     Route: 048
  9. DOXEPIN [Concomitant]
     Indication: DEPRESSION
     Dosage: 25MG PER DAY
     Route: 048
  10. KLONOPIN [Concomitant]
     Indication: ANXIETY
     Dosage: 2MG THREE TIMES PER DAY
     Route: 048

REACTIONS (4)
  - Hypertension [Recovered/Resolved]
  - Diarrhoea [Recovered/Resolved]
  - Abdominal pain upper [Recovered/Resolved]
  - Epigastric discomfort [Recovered/Resolved]
